FAERS Safety Report 6454651-3 (Version None)
Quarter: 2009Q4

REPORT INFORMATION
  Report Type: 
  Country: None (occurrence: None)
  Receive Date: 20091124
  Receipt Date: 20091120
  Transmission Date: 20100525
  Serious: Yes (Death)
  Sender: FDA-Public Use
  Company Number: PHHY2009MX50077

PATIENT
  Age: 78 Year
  Sex: Female

DRUGS (1)
  1. GALVUS MET [Suspect]
     Indication: DIABETES MELLITUS
     Route: 048

REACTIONS (1)
  - BRAIN NEOPLASM MALIGNANT [None]
